FAERS Safety Report 4488548-5 (Version None)
Quarter: 2004Q4

REPORT INFORMATION
  Report Type: 
  Country: None (occurrence: None)
  Receive Date: 20041028
  Receipt Date: 20041028
  Transmission Date: 20050328
  Serious: Yes (Hospitalization)
  Sender: FDA-Public Use
  Company Number: None

PATIENT
  Age: 56 Year
  Sex: Male
  Weight: 58.9676 kg

DRUGS (8)
  1. VIDEX [Suspect]
     Indication: HIV INFECTION
     Dosage: 400 MG, DAILY, ORAL
     Route: 048
     Dates: start: 20011023
  2. ZERIT [Suspect]
     Indication: HIV INFECTION
     Dosage: 40 MG, DAILY, ORAL
     Route: 048
     Dates: start: 20011023
  3. KALETRA [Suspect]
     Indication: HIV INFECTION
     Dosage: 3 CAPSULES, BID, ORAL
     Route: 048
     Dates: start: 20011023
  4. IMODIUM [Concomitant]
  5. NEURONTIN [Concomitant]
  6. WELLBUTRIN [Concomitant]
  7. LEXAPRO [Concomitant]
  8. MARINOL [Concomitant]

REACTIONS (6)
  - CHEST PAIN [None]
  - CORONARY ARTERY DISEASE [None]
  - DYSPNOEA [None]
  - EJECTION FRACTION DECREASED [None]
  - HYPERHIDROSIS [None]
  - MYOCARDIAL INFARCTION [None]
